FAERS Safety Report 9952678 (Version 1)
Quarter: 2014Q1

REPORT INFORMATION
  Report Type: Spontaneous
  Country: US (occurrence: US)
  Receive Date: 20140304
  Receipt Date: 20140304
  Transmission Date: 20141002
  Serious: No
  Sender: FDA-Public Use
  Company Number: US-AMGEN-USASP2013084474

PATIENT
  Age: 38 Year
  Sex: Male
  Weight: 91.16 kg

DRUGS (6)
  1. ENBREL [Suspect]
     Indication: PRODUCT USED FOR UNKNOWN INDICATION
     Dosage: 50 MG, EVERY WEEK
     Route: 058
     Dates: start: 20070426, end: 20131120
  2. DOVONEX [Concomitant]
     Dosage: 0.05 %, UNK
  3. DESONIDE [Concomitant]
     Dosage: 0.05 %, UNK
  4. TRAMADOL HCL [Concomitant]
     Dosage: 50 MG, UNK
  5. TOPIRAMATE [Concomitant]
     Dosage: 15 MG, UNK
  6. OMEPRAZOLE [Concomitant]
     Dosage: 10 MG, UNK

REACTIONS (2)
  - Musculoskeletal stiffness [Unknown]
  - Pain [Unknown]
